FAERS Safety Report 8309822-8 (Version None)
Quarter: 2012Q2

REPORT INFORMATION
  Report Type: 
  Country: None (occurrence: None)
  Receive Date: 20120425
  Receipt Date: 20120419
  Transmission Date: 20120825
  Serious: Yes (Other)
  Sender: FDA-Public Use
  Company Number: PHHY2012CH011145

PATIENT
  Sex: Male

DRUGS (1)
  1. FOCALIN XR [Suspect]
     Indication: ATTENTION DEFICIT/HYPERACTIVITY DISORDER
     Dosage: 10 MG, QD
     Route: 048
     Dates: end: 20120213

REACTIONS (5)
  - HYPERAEMIA [None]
  - OEDEMA PERIPHERAL [None]
  - PRURITUS [None]
  - VASOCONSTRICTION [None]
  - RAYNAUD'S PHENOMENON [None]
